FAERS Safety Report 14309156 (Version 3)
Quarter: 2018Q1

REPORT INFORMATION
  Report Type: Spontaneous
  Country: CA (occurrence: CA)
  Receive Date: 20171220
  Receipt Date: 20180306
  Transmission Date: 20180509
  Serious: Yes (Other)
  Sender: FDA-Public Use
  Company Number: CA-MYLANLABS-2017M1077939

PATIENT
  Age: 5 Year
  Sex: Male
  Weight: 13 kg

DRUGS (3)
  1. EPIPEN JR [Suspect]
     Active Substance: EPINEPHRINE
     Indication: URTICARIA
     Dosage: UNK
     Dates: start: 20171205
  2. BENADRYL [Concomitant]
     Active Substance: DIPHENHYDRAMINE HYDROCHLORIDE
     Indication: PRODUCT USED FOR UNKNOWN INDICATION
     Dosage: UNK
  3. EPIPEN JR [Suspect]
     Active Substance: EPINEPHRINE
     Indication: ANAPHYLACTIC REACTION

REACTIONS (9)
  - Needle issue [Unknown]
  - Injection site injury [Recovered/Resolved with Sequelae]
  - Complication of device removal [Recovered/Resolved with Sequelae]
  - Injury associated with device [Recovered/Resolved with Sequelae]
  - Device issue [Recovered/Resolved with Sequelae]
  - Injection site discolouration [Recovered/Resolved with Sequelae]
  - Drug ineffective [Recovered/Resolved]
  - Injection site pain [Recovered/Resolved with Sequelae]
  - Product quality issue [Recovered/Resolved with Sequelae]

NARRATIVE: CASE EVENT DATE: 20171205
